FAERS Safety Report 20624561 (Version 1)
Quarter: 2022Q1

REPORT INFORMATION
  Report Type: Spontaneous
  Country: US (occurrence: US)
  Receive Date: 20220322
  Receipt Date: 20220322
  Transmission Date: 20220423
  Serious: Yes (Other)
  Sender: FDA-Public Use
  Company Number: US-BAXTER-2022BAX006021

PATIENT
  Age: 12 Year
  Sex: Male

DRUGS (1)
  1. SODIUM CHLORIDE [Suspect]
     Active Substance: SODIUM CHLORIDE
     Indication: Product used for unknown indication
     Dosage: UNSPECIFIED DOSE WITH EXTRA 30 ML OF NORMAL SALINE?VIA PRE BLOOD PUMP LINE.
     Route: 065
     Dates: start: 20220314

REACTIONS (7)
  - Haemorrhage [Unknown]
  - Pallor [Unknown]
  - Malaise [Unknown]
  - Asthenia [Recovering/Resolving]
  - Blood pressure abnormal [Unknown]
  - Nausea [Recovering/Resolving]
  - Vomiting [Unknown]

NARRATIVE: CASE EVENT DATE: 20220314
